FAERS Safety Report 6532769-4 (Version None)
Quarter: 2010Q1

REPORT INFORMATION
  Report Type: 
  Country: None (occurrence: None)
  Receive Date: 20100111
  Receipt Date: 20100104
  Transmission Date: 20100710
  Serious: Yes (Other)
  Sender: FDA-Public Use
  Company Number: PHHY2010MX00518

PATIENT
  Age: 47 Year
  Sex: Female

DRUGS (5)
  1. GALVUS MET [Suspect]
     Indication: DIABETES MELLITUS
     Dosage: 2 TABLETS (500/50 MG) PER DAY
     Dates: start: 20091101
  2. CAPTOPRIL [Concomitant]
  3. MICARDIS [Concomitant]
  4. DOLO-NEUROBION (DICLOFENAC SODIUM/VIT B1 HCL/VIT B6 HCL/VIT B12) [Concomitant]
  5. BEDOYECTA [Concomitant]

REACTIONS (8)
  - CHEST DISCOMFORT [None]
  - DEPRESSED MOOD [None]
  - DEPRESSION [None]
  - DYSPNOEA [None]
  - FATIGUE [None]
  - HEART RATE DECREASED [None]
  - HEART RATE INCREASED [None]
  - HYPOAESTHESIA [None]
